FAERS Safety Report 21765690 (Version 1)
Quarter: 2022Q4

REPORT INFORMATION
  Report Type: Spontaneous
  Country: IT (occurrence: IT)
  Receive Date: 20221222
  Receipt Date: 20221222
  Transmission Date: 20230113
  Serious: Yes (Other)
  Sender: FDA-Public Use
  Company Number: IT-ROCHE-3239837

PATIENT
  Age: 15 Year
  Sex: Male

DRUGS (8)
  1. MYCOPHENOLATE MOFETIL [Suspect]
     Active Substance: MYCOPHENOLATE MOFETIL
     Indication: Cutaneous vasculitis
     Dosage: UNK
     Route: 065
  2. RITUXIMAB [Suspect]
     Active Substance: RITUXIMAB
     Indication: Prophylaxis against transplant rejection
     Dosage: 200 MG/M2
     Route: 042
  3. SIROLIMUS [Suspect]
     Active Substance: SIROLIMUS
     Indication: Cutaneous vasculitis
     Dosage: UNK
     Route: 065
  4. THIOTEPA [Suspect]
     Active Substance: THIOTEPA
     Indication: Prophylaxis against transplant rejection
     Dosage: 8 MG/M2
     Route: 065
  5. TREOSULFAN [Suspect]
     Active Substance: TREOSULFAN
     Indication: Prophylaxis against transplant rejection
     Dosage: 42 MG/M2
     Route: 065
  6. THYMOCYTE IMMUNE GLOBULIN NOS [Suspect]
     Active Substance: THYMOCYTE IMMUNE GLOBULIN NOS
     Indication: Prophylaxis against transplant rejection
     Dosage: UNK
     Route: 065
  7. FLUDARABINE [Suspect]
     Active Substance: FLUDARABINE PHOSPHATE
     Indication: Prophylaxis against transplant rejection
     Dosage: 160 MG/M2
     Route: 065
  8. SULFAMETHOXAZOLE\TRIMETHOPRIM [Concomitant]
     Active Substance: SULFAMETHOXAZOLE\TRIMETHOPRIM
     Indication: Prophylaxis
     Dosage: UNK
     Route: 065

REACTIONS (10)
  - Pneumonia staphylococcal [Unknown]
  - Typhoid fever [Unknown]
  - Viral haemorrhagic cystitis [Unknown]
  - JC virus infection [Unknown]
  - Progressive multifocal leukoencephalopathy [Unknown]
  - Cytomegalovirus viraemia [Unknown]
  - Staphylococcal infection [Unknown]
  - Polyomavirus viraemia [Unknown]
  - Epstein-Barr viraemia [Unknown]
  - Viraemia [Unknown]
